FAERS Safety Report 6270020-3 (Version None)
Quarter: 2009Q3

REPORT INFORMATION
  Report Type: 
  Country: None (occurrence: None)
  Receive Date: 20090716
  Receipt Date: 20090707
  Transmission Date: 20100115
  Serious: Yes (Other)
  Sender: FDA-Public Use
  Company Number: US-BAYER-200917921NA

PATIENT
  Age: 32 Year
  Sex: Female
  Weight: 63 kg

DRUGS (1)
  1. MIRENA [Suspect]
     Indication: CONTRACEPTION
     Dosage: CONTINUOUS
     Route: 015
     Dates: start: 20050116, end: 20090205

REACTIONS (3)
  - BREAST TENDERNESS [None]
  - ECTOPIC PREGNANCY WITH INTRAUTERINE DEVICE [None]
  - FATIGUE [None]
